FAERS Safety Report 25376820 (Version 3)
Quarter: 2025Q3

REPORT INFORMATION
  Report Type: Spontaneous
  Country: AU (occurrence: AU)
  Receive Date: 20250530
  Receipt Date: 20250729
  Transmission Date: 20251021
  Serious: Yes (Hospitalization, Other)
  Sender: NOVO NORDISK
  Company Number: AU-NOVOPROD-1439922

PATIENT
  Age: 60 Year
  Sex: Male
  Weight: 72 kg

DRUGS (6)
  1. PROTAPHANE [Suspect]
     Active Substance: INSULIN HUMAN
     Indication: Type 1 diabetes mellitus
  2. PROTAPHANE [Suspect]
     Active Substance: INSULIN HUMAN
  3. PROTAPHANE [Suspect]
     Active Substance: INSULIN HUMAN
  4. ACTRAPID [Suspect]
     Active Substance: INSULIN HUMAN
     Indication: Type 1 diabetes mellitus
  5. ACTRAPID [Suspect]
     Active Substance: INSULIN HUMAN
  6. ACTRAPID [Suspect]
     Active Substance: INSULIN HUMAN

REACTIONS (7)
  - Nephrolithiasis [Not Recovered/Not Resolved]
  - Hypoglycaemic seizure [Unknown]
  - Multiple fractures [Unknown]
  - Glycosylated haemoglobin increased [Recovered/Resolved]
  - Therapeutic product effect delayed [Unknown]
  - Therapeutic product effect decreased [Unknown]
  - Gastroenteritis [Not Recovered/Not Resolved]

NARRATIVE: CASE EVENT DATE: 20250319
